FAERS Safety Report 9230325 (Version 1)
Quarter: 2013Q2

REPORT INFORMATION
  Report Type: Spontaneous
  Country: IN (occurrence: IN)
  Receive Date: 20130415
  Receipt Date: 20130415
  Transmission Date: 20140414
  Serious: Yes (Death, Other)
  Sender: FDA-Public Use
  Company Number: PHHY2013IN035752

PATIENT
  Age: 68 Year
  Sex: Male

DRUGS (1)
  1. EXELON PATCH [Suspect]
     Indication: DEMENTIA
     Dosage: 4.6 MG, DAILY
     Route: 062
     Dates: start: 201303

REACTIONS (2)
  - Death [Fatal]
  - General physical health deterioration [Unknown]
